FAERS Safety Report 8922735 (Version 1)
Quarter: 2012Q4

REPORT INFORMATION
  Report Type: Spontaneous
  Country: US (occurrence: None)
  Receive Date: 20121115
  Receipt Date: 20121115
  Transmission Date: 20130627
  Serious: Yes (Life-Threatening, Hospitalization)
  Sender: FDA-Public Use
  Company Number: None

PATIENT
  Age: 63 Year
  Sex: Female
  Weight: 72 kg

DRUGS (1)
  1. PRASUGREL [Suspect]
     Indication: DRUG-ELUTING CORONARY STENT PLACEMENT
     Route: 048
     Dates: start: 20120913, end: 20121111

REACTIONS (3)
  - Haemoglobin decreased [None]
  - Gastrointestinal haemorrhage [None]
  - Gastrointestinal angiodysplasia [None]
